FAERS Safety Report 15576382 (Version 1)
Quarter: 2018Q4

REPORT INFORMATION
  Report Type: Spontaneous
  Country: US (occurrence: US)
  Receive Date: 20181101
  Receipt Date: 20181101
  Transmission Date: 20190205
  Serious: No
  Sender: FDA-Public Use
  Company Number: PHEH2018US045469

PATIENT
  Sex: Female

DRUGS (1)
  1. ESTRADIOL. [Suspect]
     Active Substance: ESTRADIOL
     Indication: PRODUCT USED FOR UNKNOWN INDICATION
     Dosage: 0.037 DF, QD
     Route: 065

REACTIONS (4)
  - Product adhesion issue [Unknown]
  - Drug ineffective [Unknown]
  - Hyperhidrosis [Unknown]
  - Drug intolerance [Unknown]
